FAERS Safety Report 4753170-X (Version None)
Quarter: 2005Q3

REPORT INFORMATION
  Report Type: 
  Country: None (occurrence: None)
  Receive Date: 20050823
  Receipt Date: 20050810
  Transmission Date: 20060218
  Serious: Yes (Hospitalization, Other)
  Sender: FDA-Public Use
  Company Number: 2005115349

PATIENT
  Age: 78 Year
  Sex: Male
  Weight: 83.9154 kg

DRUGS (7)
  1. ZYVOX [Suspect]
     Indication: STAPHYLOCOCCAL INFECTION
     Dates: start: 20050101, end: 20050805
  2. AMARYL [Suspect]
     Indication: DIABETES MELLITUS
     Dosage: 2 MG (2 MG, DAILY), ORAL
     Route: 048
     Dates: end: 20050807
  3. AVANDIA [Suspect]
     Indication: DIABETES MELLITUS
     Dosage: 4 MG (4 MG, DAILY), ORAL
     Route: 048
     Dates: end: 20050101
  4. SYNTHROID [Concomitant]
  5. ALLOPURINOL [Concomitant]
  6. METHOTREXATE [Concomitant]
  7. ALL OTHER THERAPEUTIC PRODUCTS (ALL OTHER THERAPEUTIC PRODUCTS) [Concomitant]

REACTIONS (5)
  - BLOOD CREATININE INCREASED [None]
  - DRUG INTERACTION [None]
  - HYPOGLYCAEMIA [None]
  - OVERDOSE [None]
  - THROMBOCYTOPENIA [None]
